FAERS Safety Report 17511729 (Version 4)
Quarter: 2020Q1

REPORT INFORMATION
  Report Type: Report from Study
  Country: US (occurrence: US)
  Receive Date: 20200307
  Receipt Date: 20200326
  Transmission Date: 20200409
  Serious: Yes (Other)
  Sender: FDA-Public Use
  Company Number: US-TEVA-2020-US-1194461

PATIENT
  Age: 24 Year
  Sex: Female

DRUGS (1)
  1. CLARAVIS [Suspect]
     Active Substance: ISOTRETINOIN
     Dosage: 30 MILLIGRAM DAILY;
     Route: 065
     Dates: start: 20200129, end: 20200213

REACTIONS (8)
  - Dry skin [Recovered/Resolved]
  - Lethargy [Recovered/Resolved]
  - Unintended pregnancy [Unknown]
  - Drug intolerance [Unknown]
  - Somnolence [Unknown]
  - Lip dry [Recovered/Resolved]
  - Xerosis [Unknown]
  - Hair texture abnormal [Recovered/Resolved]

NARRATIVE: CASE EVENT DATE: 20200213
